FAERS Safety Report 9364060 (Version 6)
Quarter: 2014Q1

REPORT INFORMATION
  Report Type: Spontaneous
  Country: GB (occurrence: GB)
  Receive Date: 20130624
  Receipt Date: 20140212
  Transmission Date: 20141002
  Serious: Yes (Other)
  Sender: FDA-Public Use
  Company Number: GB-009507513-1305GBR016067

PATIENT
  Age: 31 Year
  Sex: Female

DRUGS (3)
  1. IMPLANON [Suspect]
     Dosage: 25-30 UG, QD
     Route: 059
     Dates: start: 20110826
  2. NEXPLANON [Suspect]
     Indication: CONTRACEPTION
     Dosage: UNK
     Route: 059
     Dates: start: 20130614
  3. NEXPLANON [Suspect]
     Dosage: UNK
     Route: 059
     Dates: start: 201109

REACTIONS (7)
  - Abortion induced [Unknown]
  - Unintended pregnancy [Unknown]
  - Device difficult to use [Unknown]
  - Menstruation normal [Unknown]
  - Medical device complication [Unknown]
  - Medical device complication [Unknown]
  - Device difficult to use [Unknown]
